FAERS Safety Report 6913880-2 (Version None)
Quarter: 2010Q3

REPORT INFORMATION
  Report Type: 
  Country: None (occurrence: None)
  Receive Date: 20100809
  Receipt Date: 20100805
  Transmission Date: 20110219
  Serious: Yes (Death, Other)
  Sender: FDA-Public Use
  Company Number: TW-ROCHE-719551

PATIENT
  Age: 70 Year
  Sex: Female

DRUGS (3)
  1. AVASTIN [Suspect]
     Route: 042
     Dates: start: 20100701
  2. XELODA [Concomitant]
  3. OXALIPLATIN [Concomitant]

REACTIONS (2)
  - COLORECTAL CANCER [None]
  - UPPER GASTROINTESTINAL HAEMORRHAGE [None]
